FAERS Safety Report 10746315 (Version 2)
Quarter: 2015Q2

REPORT INFORMATION
  Report Type: Other
  Country: US (occurrence: US)
  Receive Date: 20150128
  Receipt Date: 20150501
  Transmission Date: 20150821
  Serious: No
  Sender: FDA-Public Use
  Company Number: US-ENDO PHARMACEUTICALS INC.-MODA20150002

PATIENT
  Age: 79 Year
  Sex: Male

DRUGS (3)
  1. MODAFINIL TABLETS 200MG [Suspect]
     Active Substance: MODAFINIL
     Route: 048
  2. MODAFINIL TABLETS 200MG [Suspect]
     Active Substance: MODAFINIL
     Indication: PRODUCT USED FOR UNKNOWN INDICATION
     Route: 048
  3. MODAFINIL TABLETS 200MG [Suspect]
     Active Substance: MODAFINIL
     Route: 048

REACTIONS (4)
  - Underdose [Unknown]
  - Agitation [Unknown]
  - Incorrect dose administered [Unknown]
  - Drug ineffective [Unknown]
